FAERS Safety Report 13964260 (Version 11)
Quarter: 2025Q2

REPORT INFORMATION
  Report Type: Report from Study
  Country: CA (occurrence: CA)
  Receive Date: 20170913
  Receipt Date: 20250512
  Transmission Date: 20250717
  Serious: Yes (Other)
  Sender: ROCHE
  Company Number: CA-002147023-PHHY2017CA063332

PATIENT
  Age: 12 Year
  Sex: Male
  Weight: 83.0 kg

DRUGS (28)
  1. XOLAIR [Suspect]
     Active Substance: OMALIZUMAB
     Indication: Asthma
     Route: 058
     Dates: start: 20120918
  2. XOLAIR [Suspect]
     Active Substance: OMALIZUMAB
     Route: 058
     Dates: start: 20170531
  3. XOLAIR [Suspect]
     Active Substance: OMALIZUMAB
     Route: 058
     Dates: start: 20170614
  4. XOLAIR [Suspect]
     Active Substance: OMALIZUMAB
     Route: 058
     Dates: start: 20170823
  5. XOLAIR [Suspect]
     Active Substance: OMALIZUMAB
     Route: 058
     Dates: start: 20180223
  6. XOLAIR [Suspect]
     Active Substance: OMALIZUMAB
     Route: 058
     Dates: start: 20180926
  7. XOLAIR [Suspect]
     Active Substance: OMALIZUMAB
     Route: 058
     Dates: start: 20181127
  8. XOLAIR [Suspect]
     Active Substance: OMALIZUMAB
     Route: 058
     Dates: start: 20190109
  9. XOLAIR [Suspect]
     Active Substance: OMALIZUMAB
     Route: 058
     Dates: start: 20190206
  10. XOLAIR [Suspect]
     Active Substance: OMALIZUMAB
     Route: 058
     Dates: start: 20190220
  11. XOLAIR [Suspect]
     Active Substance: OMALIZUMAB
     Route: 058
     Dates: start: 20191229
  12. XOLAIR [Suspect]
     Active Substance: OMALIZUMAB
     Route: 058
     Dates: start: 20150130
  13. XOLAIR [Suspect]
     Active Substance: OMALIZUMAB
     Route: 058
  14. XOLAIR [Suspect]
     Active Substance: OMALIZUMAB
     Route: 058
     Dates: start: 20220224
  15. XOLAIR [Suspect]
     Active Substance: OMALIZUMAB
     Dosage: 300 MG, BIW
     Route: 058
  16. XOLAIR [Suspect]
     Active Substance: OMALIZUMAB
     Route: 058
  17. XOLAIR [Suspect]
     Active Substance: OMALIZUMAB
     Route: 058
  18. XOLAIR [Suspect]
     Active Substance: OMALIZUMAB
     Route: 058
  19. XOLAIR [Suspect]
     Active Substance: OMALIZUMAB
     Route: 058
  20. XOLAIR [Suspect]
     Active Substance: OMALIZUMAB
     Route: 058
  21. XOLAIR [Suspect]
     Active Substance: OMALIZUMAB
     Route: 058
  22. SYMBICORT [Concomitant]
     Active Substance: BUDESONIDE\FORMOTEROL FUMARATE DIHYDRATE
  23. BRICANYL [Concomitant]
     Active Substance: TERBUTALINE SULFATE
  24. SINGULAIR [Concomitant]
     Active Substance: MONTELUKAST SODIUM
  25. VENTOLIN [Concomitant]
     Active Substance: ALBUTEROL SULFATE
  26. EPIPEN [Concomitant]
     Active Substance: EPINEPHRINE
  27. RESCUE [Concomitant]
     Indication: Product used for unknown indication
  28. AMOXICILLIN [Concomitant]
     Active Substance: AMOXICILLIN
     Indication: Asthma

REACTIONS (20)
  - Immunodeficiency [Unknown]
  - Weight increased [Not Recovered/Not Resolved]
  - COVID-19 [Recovered/Resolved]
  - Obstructive airways disorder [Unknown]
  - Blood pressure decreased [Unknown]
  - Viral infection [Unknown]
  - Oropharyngeal pain [Unknown]
  - Cough [Unknown]
  - Fatigue [Unknown]
  - Lethargy [Unknown]
  - Malaise [Unknown]
  - Ligament rupture [Recovering/Resolving]
  - Respiratory disorder [Unknown]
  - Wheezing [Unknown]
  - Vertigo [Unknown]
  - Forced expiratory volume decreased [Unknown]
  - Migraine [Unknown]
  - Eczema [Unknown]
  - Product availability issue [Unknown]
  - Incorrect dose administered [Unknown]

NARRATIVE: CASE EVENT DATE: 20170426
